FAERS Safety Report 19903352 (Version 1)
Quarter: 2021Q4

REPORT INFORMATION
  Report Type: Spontaneous
  Country: CN (occurrence: CN)
  Receive Date: 20211001
  Receipt Date: 20211001
  Transmission Date: 20220303
  Serious: Yes (Other)
  Sender: FDA-Public Use
  Company Number: CN-ORION CORPORATION ORION PHARMA-ENT 2021-0108

PATIENT
  Age: 64 Year
  Sex: Male

DRUGS (1)
  1. ENTACAPONE [Suspect]
     Active Substance: ENTACAPONE
     Indication: Parkinson^s disease
     Route: 048
     Dates: start: 20210712, end: 20210805

REACTIONS (2)
  - Abnormal dreams [Unknown]
  - Nightmare [Unknown]

NARRATIVE: CASE EVENT DATE: 20210805
